FAERS Safety Report 4465936-4 (Version None)
Quarter: 2004Q3

REPORT INFORMATION
  Report Type: 
  Country: None (occurrence: None)
  Receive Date: 20040930
  Receipt Date: 20040930
  Transmission Date: 20050211
  Serious: No
  Sender: FDA-Public Use
  Company Number: None

PATIENT
  Sex: Female
  Weight: 132.2 kg

DRUGS (8)
  1. CLINDAMYCIN [Suspect]
     Indication: CELLULITIS
     Dosage: 900 MG EVERY 8 HOURS INTRAVENOUS
     Route: 042
     Dates: start: 20040922, end: 20040925
  2. PULMICORT [Concomitant]
  3. TYLENOL [Concomitant]
  4. ZOLOFT [Concomitant]
  5. DUONEB [Concomitant]
  6. VENTOLIN [Concomitant]
  7. HFA [Concomitant]
  8. BENADRYL [Concomitant]

REACTIONS (3)
  - PRURITUS [None]
  - RASH [None]
  - SWELLING FACE [None]
